FAERS Safety Report 5027532-X (Version None)
Quarter: 2006Q2

REPORT INFORMATION
  Report Type: 
  Country: None (occurrence: None)
  Receive Date: 20060616
  Receipt Date: 20060608
  Transmission Date: 20061013
  Serious: Yes (Other)
  Sender: FDA-Public Use
  Company Number: PHEH2006US07588

PATIENT
  Age: 26 Year
  Sex: Male

DRUGS (1)
  1. LAMISIL [Suspect]
     Indication: NAIL TINEA
     Route: 048
     Dates: start: 20060515, end: 20060529

REACTIONS (6)
  - ANXIETY [None]
  - DEPRESSION [None]
  - DISORIENTATION [None]
  - FORMICATION [None]
  - OBSESSIVE-COMPULSIVE DISORDER [None]
  - SLEEP DISORDER [None]
